FAERS Safety Report 25204963 (Version 2)
Quarter: 2025Q2

REPORT INFORMATION
  Report Type: Spontaneous
  Country: FR (occurrence: FR)
  Receive Date: 20250416
  Receipt Date: 20250423
  Transmission Date: 20250717
  Serious: Yes (Hospitalization, Congenital Anomaly, Other)
  Sender: CELLTRION
  Company Number: FR-ABBVIE-5966761

PATIENT

DRUGS (2)
  1. ADALIMUMAB [Suspect]
     Active Substance: ADALIMUMAB
     Indication: Crohn^s disease
     Route: 058
  2. ADALIMUMAB [Suspect]
     Active Substance: ADALIMUMAB
     Route: 065

REACTIONS (4)
  - Chronic granulomatous disease [Not Recovered/Not Resolved]
  - Staphylococcal infection [Unknown]
  - Lung abscess [Unknown]
  - Drug ineffective [Unknown]
